FAERS Safety Report 10074730 (Version 2)
Quarter: 2014Q2

REPORT INFORMATION
  Report Type: Report from Study
  Country: JP (occurrence: JP)
  Receive Date: 20140414
  Receipt Date: 20140617
  Transmission Date: 20141212
  Serious: Yes (Other)
  Sender: FDA-Public Use
  Company Number: JP-PFIZER INC-2014099812

PATIENT
  Age: 7 Year
  Sex: Female

DRUGS (10)
  1. GENOTROPIN TC [Suspect]
     Indication: DWARFISM
     Dosage: 3.0 MG, WEEKLY
     Route: 058
     Dates: start: 20090226, end: 20091007
  2. GENOTROPIN TC [Suspect]
     Dosage: 3.6 MG, WEEKLY
     Route: 058
     Dates: start: 20091008, end: 20091118
  3. GENOTROPIN TC [Suspect]
     Dosage: 4.2 MG, WEEKLY
     Route: 058
     Dates: start: 20091119, end: 20100112
  4. GENOTROPIN TC [Suspect]
     Dosage: 4.8 MG, WEEKLY
     Route: 058
     Dates: start: 20100113, end: 20100512
  5. GENOTROPIN TC [Suspect]
     Dosage: 5.4 MG, WEEKLY
     Route: 058
     Dates: start: 20100513, end: 20101123
  6. GENOTROPIN TC [Suspect]
     Dosage: 6.0 MG, WEEKLY
     Route: 058
     Dates: start: 20101124, end: 20130320
  7. GENOTROPIN TC [Suspect]
     Dosage: 6.6 MG, WEEKLY
     Route: 058
     Dates: start: 20130321, end: 20130925
  8. GENOTROPIN TC [Suspect]
     Dosage: 7.2 MG, WEEKLY
     Dates: start: 20130926
  9. STRATTERA [Concomitant]
     Indication: ATTENTION DEFICIT/HYPERACTIVITY DISORDER
     Dosage: UNK
     Route: 048
     Dates: start: 20120628
  10. CONCERTA [Concomitant]
     Indication: ATTENTION DEFICIT/HYPERACTIVITY DISORDER
     Dosage: UNK
     Route: 048
     Dates: start: 20130418

REACTIONS (2)
  - Campylobacter gastroenteritis [Recovered/Resolved]
  - Attention deficit/hyperactivity disorder [Not Recovered/Not Resolved]
